FAERS Safety Report 20497645 (Version 1)
Quarter: 2022Q1

REPORT INFORMATION
  Report Type: Spontaneous
  Country: US (occurrence: US)
  Receive Date: 20220221
  Receipt Date: 20220221
  Transmission Date: 20220423
  Serious: Yes (Hospitalization)
  Sender: FDA-Public Use
  Company Number: US-BIOVITRUM-2022US02342

PATIENT
  Sex: Male
  Weight: 6 kg

DRUGS (8)
  1. SYNAGIS [Suspect]
     Active Substance: PALIVIZUMAB
     Indication: Product used for unknown indication
     Route: 030
  2. EPANED SOLUTION [Concomitant]
  3. PREVACID [Concomitant]
     Active Substance: LANSOPRAZOLE
  4. SODIUM CHLORIDE [Concomitant]
     Active Substance: SODIUM CHLORIDE
  5. GABAPENTIN SOLUTION [Concomitant]
  6. SILDENAFIL CITRATE SUSP RECON [Concomitant]
  7. SILDENAFIL [Concomitant]
     Active Substance: SILDENAFIL
  8. METHADONE HCL SOLUTION [Concomitant]

REACTIONS (1)
  - Respiratory syncytial virus infection [Unknown]
